FAERS Safety Report 18080889 (Version 1)
Quarter: 2020Q3

REPORT INFORMATION
  Report Type: Spontaneous
  Country: ES (occurrence: ES)
  Receive Date: 20200728
  Receipt Date: 20200728
  Transmission Date: 20201103
  Serious: Yes (Death, Hospitalization, Other)
  Sender: FDA-Public Use
  Company Number: ES-MYLANLABS-2020M1066734

PATIENT
  Age: 41 Year
  Sex: Male

DRUGS (5)
  1. ANTI?INFLAMMATORY [Concomitant]
     Active Substance: UNSPECIFIED INGREDIENT
     Indication: PRODUCT USED FOR UNKNOWN INDICATION
     Dosage: UNK
     Route: 065
  2. PARACETAMOL/TRAMADOL [Suspect]
     Active Substance: ACETAMINOPHEN\TRAMADOL
     Indication: SPINAL OSTEOARTHRITIS
     Dosage: 12 DOSAGE FORM, 1/DAY
     Route: 065
  3. VENLAFAXINE [Interacting]
     Active Substance: VENLAFAXINE HYDROCHLORIDE
     Indication: ADJUSTMENT DISORDER WITH DEPRESSED MOOD
     Dosage: 150 MILLIGRAM, 1/DAY
     Route: 065
  4. PARACETAMOL/TRAMADOL [Interacting]
     Active Substance: ACETAMINOPHEN\TRAMADOL
     Indication: MUSCULOSKELETAL DISORDER
  5. DIAZEPAM. [Concomitant]
     Active Substance: DIAZEPAM
     Indication: PRODUCT USED FOR UNKNOWN INDICATION
     Dosage: OCASIONALLY 2 MG AT NIGHT
     Route: 065

REACTIONS (25)
  - Accident at work [Fatal]
  - Cardiac arrest [Unknown]
  - Cognitive disorder [Unknown]
  - Skull fractured base [Unknown]
  - Treatment noncompliance [Unknown]
  - Drug abuse [Fatal]
  - Bradycardia [Unknown]
  - Drug dependence [Unknown]
  - Fall [Fatal]
  - Ear haemorrhage [Unknown]
  - Confusional state [Unknown]
  - Intentional overdose [Unknown]
  - Craniocerebral injury [Fatal]
  - Analgesic drug level above therapeutic [Fatal]
  - Mouth haemorrhage [Unknown]
  - Toxicity to various agents [Unknown]
  - Mydriasis [Unknown]
  - Drug interaction [Unknown]
  - Coma [Unknown]
  - Hypotension [Unknown]
  - Sensory disturbance [Unknown]
  - Pulmonary contusion [Fatal]
  - Forearm fracture [Unknown]
  - Serotonin syndrome [Unknown]
  - Dizziness [Unknown]
